FAERS Safety Report 17005766 (Version 1)
Quarter: 2019Q4

REPORT INFORMATION
  Report Type: Spontaneous
  Country: CL (occurrence: CL)
  Receive Date: 20191107
  Receipt Date: 20191107
  Transmission Date: 20200122
  Serious: Yes (Hospitalization)
  Sender: FDA-Public Use
  Company Number: CL-MYLANLABS-2019M1106047

PATIENT
  Age: 47 Year
  Sex: Male

DRUGS (6)
  1. HALDOL [Concomitant]
     Active Substance: HALOPERIDOL
     Dosage: 2 MILLIGRAM, QD
     Route: 048
  2. HALDOL [Concomitant]
     Active Substance: HALOPERIDOL
     Indication: SCHIZOPHRENIA
     Dosage: 5 MILLIGRAM, QD
     Route: 048
  3. CLONAZEPAM. [Concomitant]
     Active Substance: CLONAZEPAM
     Indication: SCHIZOPHRENIA
     Dosage: UNK, QD (3 TAB WEIGHT IS NOT VISIBLE)
     Route: 048
  4. LEPONEX [Suspect]
     Active Substance: CLOZAPINE
     Indication: SCHIZOPHRENIA
     Dosage: 300 MILLIGRAM, QD
     Route: 048
  5. SERTRALINE [Concomitant]
     Active Substance: SERTRALINE HYDROCHLORIDE
     Indication: SCHIZOPHRENIA
     Dosage: 25 MILLIGRAM, QD
     Route: 048
  6. LITHIUM. [Concomitant]
     Active Substance: LITHIUM
     Indication: SCHIZOPHRENIA
     Dosage: 450 MILLIGRAM, QD
     Route: 048

REACTIONS (1)
  - Psychotic disorder [Recovered/Resolved]

NARRATIVE: CASE EVENT DATE: 20191008
